FAERS Safety Report 8104376-3 (Version None)
Quarter: 2012Q1

REPORT INFORMATION
  Report Type: 
  Country: None (occurrence: None)
  Receive Date: 20120130
  Receipt Date: 20120124
  Transmission Date: 20120608
  Serious: Yes (Hospitalization)
  Sender: FDA-Public Use
  Company Number: FR-B.I. PHARMACEUTICALS,INC./RIDGEFIELD-2012-FF-00113FF

PATIENT
  Sex: Male

DRUGS (11)
  1. FORADIL [Concomitant]
  2. BECLOMETHASONE DIPROPIONATE [Concomitant]
  3. ISOPTIN [Concomitant]
  4. MONICOR [Concomitant]
  5. PREVISCAN [Concomitant]
  6. POTASSIUM CHLORIDE [Concomitant]
  7. TRAMADOL HCL [Concomitant]
  8. ZOLPIDEM [Concomitant]
  9. CLOMIPRAMINE HYDROCHLORIDE [Concomitant]
  10. SPIRIVA [Suspect]
     Route: 055
     Dates: start: 20110929, end: 20111005
  11. ALDACTONE [Concomitant]

REACTIONS (3)
  - PETECHIAE [None]
  - LEUKOCYTOCLASTIC VASCULITIS [None]
  - VASCULAR PURPURA [None]
